FAERS Safety Report 22112421 (Version 1)
Quarter: 2023Q1

REPORT INFORMATION
  Report Type: Report from Study
  Country: GB (occurrence: GB)
  Receive Date: 20230319
  Receipt Date: 20230319
  Transmission Date: 20230418
  Serious: Yes (Hospitalization, Other)
  Sender: FDA-Public Use
  Company Number: GB-CELLTRION INC.-2022GB020985

PATIENT

DRUGS (323)
  1. METFORMIN HYDROCHLORIDE [Suspect]
     Active Substance: METFORMIN HYDROCHLORIDE
     Indication: Product used for unknown indication
     Dosage: 2 G, TABLET (UNCOATED, ORAL)
     Route: 048
  2. METFORMIN HYDROCHLORIDE [Suspect]
     Active Substance: METFORMIN HYDROCHLORIDE
     Dosage: 2 G, TABLET (UNCOATED, ORAL)
     Route: 048
  3. METFORMIN HYDROCHLORIDE [Suspect]
     Active Substance: METFORMIN HYDROCHLORIDE
     Dosage: 2 G
     Route: 065
  4. METFORMIN HYDROCHLORIDE [Suspect]
     Active Substance: METFORMIN HYDROCHLORIDE
     Dosage: 2 G
     Route: 048
  5. METFORMIN HYDROCHLORIDE [Suspect]
     Active Substance: METFORMIN HYDROCHLORIDE
     Dosage: 2 G
  6. ATEZOLIZUMAB [Suspect]
     Active Substance: ATEZOLIZUMAB
     Indication: Neoplasm malignant
     Dosage: THERAPY START DATE: 04 FEB 2020?1200 MILLIGRAM, TIW
     Route: 042
  7. ATEZOLIZUMAB [Suspect]
     Active Substance: ATEZOLIZUMAB
     Indication: Non-small cell lung cancer metastatic
     Dosage: 1200 MILLIGRAM Q3WEEK, THERAPY: 25 MAR 2020
     Route: 042
  8. ATEZOLIZUMAB [Suspect]
     Active Substance: ATEZOLIZUMAB
     Dosage: 1200 MILLIGRAM Q3WEEK, THERAPY START: 24 JUN 2020
     Route: 042
  9. ATEZOLIZUMAB [Suspect]
     Active Substance: ATEZOLIZUMAB
     Dosage: 1200 MILLIGRAM Q3WEEK, THERAPY START 06 MAR 2020
     Route: 042
  10. ATEZOLIZUMAB [Suspect]
     Active Substance: ATEZOLIZUMAB
     Dosage: 1200 MILLIGRAM, Q3WK, THERAPY START: 16 SEP 2020
     Route: 042
  11. ATEZOLIZUMAB [Suspect]
     Active Substance: ATEZOLIZUMAB
     Dosage: 1200 MILLIGRAM, Q3WK, THERAPY STAR: 13-MAY-2020
     Route: 042
     Dates: end: 20200715
  12. ATEZOLIZUMAB [Suspect]
     Active Substance: ATEZOLIZUMAB
     Dosage: 1200 MILLIGRAM, Q3WK. THERAPY START: 03-JUN-2020
     Route: 042
  13. ATEZOLIZUMAB [Suspect]
     Active Substance: ATEZOLIZUMAB
     Dosage: THERAPY START DATE: 02 FEB 2020?1200 MILLIGRAM, 3 WEEK
     Route: 042
  14. ATEZOLIZUMAB [Suspect]
     Active Substance: ATEZOLIZUMAB
     Dosage: 1200 MILLIGRAM, Q3WK, THERAPY START: 12-MAR-2020
     Route: 042
  15. ATEZOLIZUMAB [Suspect]
     Active Substance: ATEZOLIZUMAB
     Dosage: 1200 MILLIGRAM, Q3WK. THERAPY START: 15-JUL-2020
     Route: 042
  16. ATEZOLIZUMAB [Suspect]
     Active Substance: ATEZOLIZUMAB
     Dosage: 1200 MILLIGRAM Q3WEEK, THERAPY START: 05-AUG-2020
     Route: 042
  17. ATEZOLIZUMAB [Suspect]
     Active Substance: ATEZOLIZUMAB
     Dosage: 1200 MG, Q3WK, THERAPY START: 12-AUG-2020
     Route: 042
  18. ATEZOLIZUMAB [Suspect]
     Active Substance: ATEZOLIZUMAB
     Dosage: 1200 MILLIGRAM, Q3WK, THERAPY START: 26-AUG-2020
     Route: 042
  19. ATEZOLIZUMAB [Suspect]
     Active Substance: ATEZOLIZUMAB
     Dosage: 1200 MG, Q3WK, THERAPY START: 04-MAR-2020
     Route: 042
  20. ATEZOLIZUMAB [Suspect]
     Active Substance: ATEZOLIZUMAB
     Dosage: 1200 MILLIGRAM, Q3WK, THERAPY START: 26-JUN-2020
     Route: 042
  21. ATEZOLIZUMAB [Suspect]
     Active Substance: ATEZOLIZUMAB
     Dosage: 1200 MILLIGRAM, Q3WK, THERAPY START: 12-FEB-2020
     Route: 042
     Dates: end: 20200415
  22. ATEZOLIZUMAB [Suspect]
     Active Substance: ATEZOLIZUMAB
     Dosage: 1200 MG, Q3WK, THERAPY START: 15-APR-2020
     Route: 042
  23. ATEZOLIZUMAB [Suspect]
     Active Substance: ATEZOLIZUMAB
     Dosage: 1200 MILLIGRAM, Q3WK, THERAPY START: 12-MAR-2020
     Route: 042
  24. BEVACIZUMAB [Suspect]
     Active Substance: BEVACIZUMAB
     Indication: Non-small cell lung cancer metastatic
     Dosage: PDF-11201000
  25. BEVACIZUMAB [Suspect]
     Active Substance: BEVACIZUMAB
     Dosage: UNK
  26. BEVACIZUMAB [Suspect]
     Active Substance: BEVACIZUMAB
     Dosage: UNK
  27. BEVACIZUMAB [Suspect]
     Active Substance: BEVACIZUMAB
     Dosage: 1 DF, THERAPY START: 04-FEB-2020
  28. BEVACIZUMAB [Suspect]
     Active Substance: BEVACIZUMAB
     Dosage: PDF-11201000
     Route: 042
  29. CARBOPLATIN [Suspect]
     Active Substance: CARBOPLATIN
     Indication: Breast cancer
     Dosage: 500 MILLIGRAM (INITIATED 12-OCT-2012) THERAPY START: 12 OCT 2012
  30. CARBOPLATIN [Suspect]
     Active Substance: CARBOPLATIN
     Indication: Breast cancer
     Dosage: 750 MILLIGRAM
     Route: 065
     Dates: start: 20120817
  31. CARBOPLATIN [Suspect]
     Active Substance: CARBOPLATIN
     Indication: Non-small cell lung cancer metastatic
     Dosage: 750 MILLIGRAM;
     Dates: start: 20120817
  32. CARBOPLATIN [Suspect]
     Active Substance: CARBOPLATIN
     Dosage: UNK
     Dates: start: 20120817
  33. CARBOPLATIN [Suspect]
     Active Substance: CARBOPLATIN
     Dosage: UNK
     Route: 065
     Dates: start: 20120817
  34. CARBOPLATIN [Suspect]
     Active Substance: CARBOPLATIN
     Dosage: 750 MG
     Dates: start: 20120817
  35. CARBOPLATIN [Suspect]
     Active Substance: CARBOPLATIN
     Dosage: 750 MG
     Dates: start: 20120817
  36. CARBOPLATIN [Suspect]
     Active Substance: CARBOPLATIN
     Dosage: UNK
     Dates: start: 20120817
  37. CARBOPLATIN [Suspect]
     Active Substance: CARBOPLATIN
     Dosage: 500 MG THERAPY START: 12 OCT 2012
  38. CARBOPLATIN [Suspect]
     Active Substance: CARBOPLATIN
     Dosage: 750 MG
     Dates: start: 20120817
  39. CARBOPLATIN [Suspect]
     Active Substance: CARBOPLATIN
     Dosage: UNK
     Route: 065
     Dates: start: 20120817
  40. CARBOPLATIN [Suspect]
     Active Substance: CARBOPLATIN
     Dosage: 750 MILLIGRAM
     Dates: start: 20120817
  41. CARBOPLATIN [Suspect]
     Active Substance: CARBOPLATIN
     Dosage: 500 MG THERAPY START: 12 OCT 2012
  42. CARBOPLATIN [Suspect]
     Active Substance: CARBOPLATIN
     Dosage: UNK
     Route: 065
     Dates: start: 20120817
  43. CARBOPLATIN [Suspect]
     Active Substance: CARBOPLATIN
     Dosage: UNK
     Route: 065
     Dates: start: 20120817
  44. CARBOPLATIN [Suspect]
     Active Substance: CARBOPLATIN
     Dosage: UNK
     Dates: start: 20120817
  45. CARBOPLATIN [Suspect]
     Active Substance: CARBOPLATIN
     Dosage: 500 MILLIGRAM (INITIATED 12-OCT-2012) THERAPY START: 12 OCT 2012
  46. CARBOPLATIN [Suspect]
     Active Substance: CARBOPLATIN
     Dosage: 500 MG
     Route: 065
  47. CARBOPLATIN [Suspect]
     Active Substance: CARBOPLATIN
     Dosage: UNK
     Route: 065
     Dates: start: 20120817
  48. CARBOPLATIN [Suspect]
     Active Substance: CARBOPLATIN
     Dosage: UNK
     Route: 065
     Dates: start: 20120817
  49. CARBOPLATIN [Suspect]
     Active Substance: CARBOPLATIN
     Dosage: UNK
     Dates: start: 20120817
  50. CARBOPLATIN [Suspect]
     Active Substance: CARBOPLATIN
     Dosage: UNK
  51. CARBOPLATIN [Suspect]
     Active Substance: CARBOPLATIN
     Dosage: UNK
  52. DOCETAXEL [Suspect]
     Active Substance: DOCETAXEL
     Indication: Breast cancer
     Dosage: UNK
     Dates: start: 20120817
  53. DOCETAXEL [Suspect]
     Active Substance: DOCETAXEL
     Indication: Breast cancer
     Dosage: UNK (INITIATED-10-DEC-2012 ), THERAPY START: 10 DEC 2012
     Route: 065
  54. DOCETAXEL [Suspect]
     Active Substance: DOCETAXEL
     Indication: Breast cancer
     Dosage: UNK
     Route: 065
     Dates: start: 20120817
  55. DOCETAXEL [Suspect]
     Active Substance: DOCETAXEL
     Indication: Breast cancer
     Dosage: UNK
     Route: 065
     Dates: start: 20120817
  56. DOCETAXEL [Suspect]
     Active Substance: DOCETAXEL
     Dosage: UNK THERAPY START: 10 DEC 2012
  57. DOCETAXEL [Suspect]
     Active Substance: DOCETAXEL
     Dosage: 120 MG; THERAPY START: 12 OCT 2012
  58. DOCETAXEL [Suspect]
     Active Substance: DOCETAXEL
     Dosage: 120 MG  THERAPY START: 10 DEC 2012
  59. DOCETAXEL [Suspect]
     Active Substance: DOCETAXEL
     Dosage: 120 MILLIGRAM
     Route: 065
  60. DOCETAXEL [Suspect]
     Active Substance: DOCETAXEL
     Dosage: 120 MILLIGRAM
     Dates: start: 20120817, end: 2012
  61. DOCETAXEL [Suspect]
     Active Substance: DOCETAXEL
     Dosage: 120 MG;  THERAPY START: 10 DEC 2012
     Route: 065
  62. DOCETAXEL [Suspect]
     Active Substance: DOCETAXEL
     Dosage: UNK
     Route: 065
     Dates: start: 20120817
  63. DOCETAXEL [Suspect]
     Active Substance: DOCETAXEL
     Dosage: 120 MG  THERAPY START: 10 DEC 2012
  64. DOCETAXEL [Suspect]
     Active Substance: DOCETAXEL
     Dosage: UNK
     Dates: start: 20120817
  65. DOCETAXEL [Suspect]
     Active Substance: DOCETAXEL
     Dosage: UNK
     Dates: start: 20120817
  66. DOCETAXEL [Suspect]
     Active Substance: DOCETAXEL
     Dosage: UNK  THERAPY START: 12 OCT 2012
     Route: 065
  67. DOCETAXEL [Suspect]
     Active Substance: DOCETAXEL
     Dosage: 80 MG, UNK THERAPY START: 12 OCT 212
  68. DOCETAXEL [Suspect]
     Active Substance: DOCETAXEL
     Dosage: 120 MILLIGRAM;
     Dates: start: 20120817
  69. DOCETAXEL [Suspect]
     Active Substance: DOCETAXEL
     Dosage: UNK
     Route: 065
     Dates: start: 20120817
  70. DOCETAXEL [Suspect]
     Active Substance: DOCETAXEL
     Dosage: 120MG/120 MILLIGRAM;
     Route: 065
     Dates: start: 20120817
  71. DOCETAXEL [Suspect]
     Active Substance: DOCETAXEL
     Dosage: UNK
     Dates: start: 20120817
  72. DOCETAXEL [Suspect]
     Active Substance: DOCETAXEL
     Dosage: 120 MILLIGRAM;
     Dates: start: 20120817, end: 2012
  73. DOCETAXEL [Suspect]
     Active Substance: DOCETAXEL
     Dosage: 80 MG  THERAPY START: 12 OCT 2012
  74. DOCETAXEL [Suspect]
     Active Substance: DOCETAXEL
     Dosage: 120 MILLIGRAM
     Dates: start: 20120817
  75. DOCETAXEL [Suspect]
     Active Substance: DOCETAXEL
     Dosage: 80 MG, UNK;  THERAPY START: 12 OCT 2012
     Route: 065
  76. DOCETAXEL [Suspect]
     Active Substance: DOCETAXEL
     Dosage: 120 MG
     Dates: start: 20120817
  77. DOCETAXEL [Suspect]
     Active Substance: DOCETAXEL
     Dosage: UNK  THERAPY START: 10 DEC 2012
  78. DOCETAXEL [Suspect]
     Active Substance: DOCETAXEL
     Dosage: 80 MG  THERAPY START: 12 OCT 2012
  79. DOCETAXEL [Suspect]
     Active Substance: DOCETAXEL
     Dosage: UNK THERAPY START: 10 DEC 2012
     Route: 065
  80. DOCETAXEL [Suspect]
     Active Substance: DOCETAXEL
     Dosage: 80 MILLIGRAM  THERAPY START: 12 OCT 2012
  81. DOCETAXEL [Suspect]
     Active Substance: DOCETAXEL
     Dosage: 120 MG, THERAPY START: 10 DEC 2012
  82. DOCETAXEL [Suspect]
     Active Substance: DOCETAXEL
     Dosage: 80 MG  THERAPY START: 12 OCT 2012
  83. DOCETAXEL [Suspect]
     Active Substance: DOCETAXEL
     Dosage: 120 MILLIGRAM;  THERAPY START: 10 DEC 2012
  84. DOCETAXEL [Suspect]
     Active Substance: DOCETAXEL
     Dosage: UNK
     Dates: start: 20120817
  85. DOCETAXEL [Suspect]
     Active Substance: DOCETAXEL
     Dosage: UNK  THERAPY START: 12 OCT 2012
  86. DOCETAXEL [Suspect]
     Active Substance: DOCETAXEL
     Dosage: 120 MG  THERAPY START: 10 DEC 2012
  87. DOCETAXEL [Suspect]
     Active Substance: DOCETAXEL
     Dosage: UNK
     Dates: start: 20120817
  88. DOCETAXEL [Suspect]
     Active Substance: DOCETAXEL
     Dosage: UNK
     Route: 065
     Dates: start: 20120817
  89. DOCETAXEL [Suspect]
     Active Substance: DOCETAXEL
     Dosage: 80 MILLIGRAM (INITIATED ON 12-OCT-2012) 80 MG, UNK  THERAPY START: 12 OCT 2012
     Route: 065
  90. DOCETAXEL [Suspect]
     Active Substance: DOCETAXEL
     Dosage: 80 MG  THERAPY START: 12 OCT 2012
     Route: 065
  91. DOCETAXEL [Suspect]
     Active Substance: DOCETAXEL
     Dosage: UNK
     Route: 065
     Dates: start: 20120817
  92. DOCETAXEL [Suspect]
     Active Substance: DOCETAXEL
     Dosage: UNK  THERAPY START: 12 OCT 2012
  93. DOCETAXEL [Suspect]
     Active Substance: DOCETAXEL
     Dosage: 120 MG
     Dates: start: 20120817, end: 2012
  94. DOCETAXEL [Suspect]
     Active Substance: DOCETAXEL
     Dosage: UNK  THERAPY START: 10 DEC 2012
  95. DOCETAXEL [Suspect]
     Active Substance: DOCETAXEL
     Dosage: UNK  THERAPY START: 12 OCT 2012
  96. DOCETAXEL [Suspect]
     Active Substance: DOCETAXEL
     Dosage: UNK
     Dates: start: 20120817
  97. DOCETAXEL [Suspect]
     Active Substance: DOCETAXEL
     Dosage: 120 MG THERAPY START 10 DEC 2012
  98. DOCETAXEL [Suspect]
     Active Substance: DOCETAXEL
     Dosage: UNK
     Dates: start: 20120817
  99. DOCETAXEL [Suspect]
     Active Substance: DOCETAXEL
     Dosage: UNK
     Route: 065
     Dates: start: 20120817
  100. DOCETAXEL [Suspect]
     Active Substance: DOCETAXEL
     Dosage: 120 MG  THERAPY START: 10 DEC 2012
  101. DOCETAXEL [Suspect]
     Active Substance: DOCETAXEL
     Dosage: 80 MILLIGRAM  THERAPY START: 12 OCT 2012
  102. DOCETAXEL [Suspect]
     Active Substance: DOCETAXEL
     Dosage: 80 MG  THERAPY START: 12 OCT 2012
     Route: 065
  103. DOCETAXEL [Suspect]
     Active Substance: DOCETAXEL
     Dosage: 120 MG
     Dates: start: 20120817
  104. DOCETAXEL [Suspect]
     Active Substance: DOCETAXEL
     Dosage: 80 MILLIGRAM (INITIATED ON 12-OCT-2012) 80 MG, UNK  THERAPY START: 12 OCT 2012
  105. DOCETAXEL [Suspect]
     Active Substance: DOCETAXEL
     Dosage: 80 MILLIGRAM  THERAPY START: 12 OCT 2012
  106. DOCETAXEL [Suspect]
     Active Substance: DOCETAXEL
     Dosage: UNK
  107. DOCETAXEL [Suspect]
     Active Substance: DOCETAXEL
     Dosage: 120 MG
     Dates: start: 20120817
  108. DOCETAXEL [Suspect]
     Active Substance: DOCETAXEL
     Dosage: UNK  THERAPY START: 12 OCT 2012
  109. DOCETAXEL [Suspect]
     Active Substance: DOCETAXEL
     Dosage: 120 MILLIGRAM
     Route: 065
     Dates: start: 20120817
  110. DOCETAXEL [Suspect]
     Active Substance: DOCETAXEL
     Dosage: 80 MILLIGRAM  THERAPY START: 12 OCT 2012
  111. DOCETAXEL [Suspect]
     Active Substance: DOCETAXEL
     Dosage: 120 MILLIGRAM
     Dates: start: 20120817
  112. DOCETAXEL [Suspect]
     Active Substance: DOCETAXEL
     Dosage: 120 MG  THERAPY START: 10 DEC 2012
  113. DOCETAXEL [Suspect]
     Active Substance: DOCETAXEL
     Dosage: 120 MG
     Route: 065
     Dates: start: 20120817
  114. DOCETAXEL [Suspect]
     Active Substance: DOCETAXEL
     Dosage: 80 MG, UNK;  THERAPY START: 12 OCT 2012
  115. DOCETAXEL [Suspect]
     Active Substance: DOCETAXEL
     Dosage: UNK  THERAPY START: 10 DEC 2012
  116. DOCETAXEL [Suspect]
     Active Substance: DOCETAXEL
     Dosage: 120 MG
     Dates: start: 20120817
  117. ETOPOSIDE [Suspect]
     Active Substance: ETOPOSIDE
     Indication: Neoplasm malignant
     Dosage: UNK
  118. ETOPOSIDE [Suspect]
     Active Substance: ETOPOSIDE
     Indication: Non-small cell lung cancer metastatic
     Dosage: UNK
  119. FAMOTIDINE [Suspect]
     Active Substance: FAMOTIDINE
     Indication: Product used for unknown indication
     Dosage: UNK, THERAPY START: 13 MAY 2020
     Dates: end: 20200513
  120. FAMOTIDINE [Suspect]
     Active Substance: FAMOTIDINE
     Indication: Hepatic failure
     Dosage: 40 MILLIGRAM, QD, THERAPY START: 12-FEB-2020
     Dates: end: 20200212
  121. FAMOTIDINE [Suspect]
     Active Substance: FAMOTIDINE
     Dosage: 40 MILLIGRAM, QD, THERAPY START: 12-FEB-2020
     Dates: end: 20200212
  122. FAMOTIDINE [Suspect]
     Active Substance: FAMOTIDINE
     Dosage: 40 MILLIGRAM, QD/ START DATE:12-FEB-2020
  123. FILGRASTIM [Suspect]
     Active Substance: FILGRASTIM
     Indication: Off label use
     Dosage: UNK. THERAPY START: 13-MAY-2020
     Dates: end: 20220515
  124. FILGRASTIM [Suspect]
     Active Substance: FILGRASTIM
     Indication: White blood cell count decreased
     Dosage: UNK, THERAPY START: 12-MAY-2020
     Dates: end: 20200515
  125. FILGRASTIM [Suspect]
     Active Substance: FILGRASTIM
     Indication: Non-small cell lung cancer metastatic
     Dosage: MOST RECENT DOSE : 15 MAY 2020, THERAPY START: 13-MAY-2020
     Dates: end: 20200515
  126. FILGRASTIM [Suspect]
     Active Substance: FILGRASTIM
     Indication: Product used for unknown indication
     Dosage: UNK, THERAPY START: 14 SEP 2012
     Dates: end: 20120920
  127. FILGRASTIM [Suspect]
     Active Substance: FILGRASTIM
     Dosage: UNK  THERAPY START: 12 OCT 2012
     Dates: end: 20121019
  128. FILGRASTIM [Suspect]
     Active Substance: FILGRASTIM
     Dosage: UNK  THERAPY START: 14 SEP 2012
     Dates: end: 20120920
  129. FILGRASTIM [Suspect]
     Active Substance: FILGRASTIM
     Dosage: UNK  THERAPY START: 18 AUG 2012
     Dates: end: 20120823
  130. FILGRASTIM [Suspect]
     Active Substance: FILGRASTIM
     Dosage: UNK  THERAPY START: 12 OCT 2012
     Dates: end: 20121019
  131. FILGRASTIM [Suspect]
     Active Substance: FILGRASTIM
     Dosage: UNK  THERAPY START: 18 AUG 2012
     Dates: end: 20120823
  132. FILGRASTIM [Suspect]
     Active Substance: FILGRASTIM
     Dosage: UNK  THERAPY START: 14 SEP 2012
     Dates: end: 20120920
  133. FILGRASTIM [Suspect]
     Active Substance: FILGRASTIM
     Dosage: UNK  THERAPY START: 18 AUG 2012
     Dates: end: 20120823
  134. FILGRASTIM [Suspect]
     Active Substance: FILGRASTIM
     Dosage: UNK  THERAPY START: 14 SEP 2012
     Dates: end: 20120920
  135. FILGRASTIM [Suspect]
     Active Substance: FILGRASTIM
     Dosage: UNK  THERAPY START: 12 OCT 2012
     Dates: end: 20121019
  136. FILGRASTIM [Suspect]
     Active Substance: FILGRASTIM
     Dosage: UNK  THERAPY START: 14 SEP 2012
     Route: 065
     Dates: end: 20120920
  137. FILGRASTIM [Suspect]
     Active Substance: FILGRASTIM
     Dosage: UNK  THERAPY START: 12 OCT 2012
     Dates: end: 20121019
  138. HERCEPTIN [Suspect]
     Active Substance: TRASTUZUMAB
     Indication: Breast cancer
     Dosage: 546 MILLIGRAM (DOSE FORM: 230)
     Route: 042
     Dates: start: 20120817
  139. HERCEPTIN [Suspect]
     Active Substance: TRASTUZUMAB
     Dosage: 420 MILLIGRAM (INITIATED 12-OCT-2012)  THERAPY START: 12 OCT 2012
     Route: 042
  140. HERCEPTIN [Suspect]
     Active Substance: TRASTUZUMAB
     Dosage: 420 MG  THERAPY START: 12 OCT 2012
     Route: 042
  141. HERCEPTIN [Suspect]
     Active Substance: TRASTUZUMAB
     Dosage: 546 MILLIGRAM
     Route: 042
     Dates: start: 20120817
  142. HERCEPTIN [Suspect]
     Active Substance: TRASTUZUMAB
     Dosage: 420 MILLIGRAM  THERAPY START: 12 OCT 2012
  143. PERTUZUMAB [Suspect]
     Active Substance: PERTUZUMAB
     Indication: Breast cancer
     Dosage: UNK, THERAPY START: 12-OCT-2012
     Route: 042
  144. PERTUZUMAB [Suspect]
     Active Substance: PERTUZUMAB
     Indication: Breast cancer
     Dosage: 1 MG, Q3W DATE OF LAST DOSE PRIOR TO SAE: 12 OCT 2012,
     Route: 042
     Dates: start: 20120817, end: 20121012
  145. PERTUZUMAB [Suspect]
     Active Substance: PERTUZUMAB
     Indication: Breast cancer
     Dosage: 1 MG EVERY 3 WEEKS/DATE OF LAST DOSE PRIOR TO SAE: 12/OCT/2012 (DOSE FORM: 293) 1 MG, Q3W DATE OF LA
     Route: 042
     Dates: start: 20120817, end: 20121012
  146. PERTUZUMAB [Suspect]
     Active Substance: PERTUZUMAB
     Indication: Breast cancer
     Dosage: 1 MG EVERY 3 WEEKS/DATE OF LAST DOSE PRIOR TO SAE: 12/OCT/2012 (DOSE FORM: 293) 1 MG, Q3W DATE OF LA
     Route: 042
     Dates: start: 20120817, end: 20121012
  147. PERTUZUMAB [Suspect]
     Active Substance: PERTUZUMAB
     Indication: Breast cancer
     Dosage: UNK, THERAPY START: 12-OCT-2012
  148. PERTUZUMAB [Suspect]
     Active Substance: PERTUZUMAB
     Dosage: DATE OF LAST DOSE PRIOR TO SAE: 12/OCT/2012 (DOSE FORM: 293)
     Route: 042
     Dates: start: 20120817
  149. PERTUZUMAB [Suspect]
     Active Substance: PERTUZUMAB
     Dosage: 1 MG, Q3W DATE OF LAST DOSE PRIOR TO SAE: 12 OCT 2012
     Route: 042
     Dates: start: 20120817, end: 20121012
  150. PERTUZUMAB [Suspect]
     Active Substance: PERTUZUMAB
     Dosage: DATE OF LAST DOSE PRIOR TO SAE: 12/OCT/2012 (DOSE FORM: 293); EVERY 3 WEEKS
     Route: 042
     Dates: start: 20120817, end: 20121012
  151. PERTUZUMAB [Suspect]
     Active Substance: PERTUZUMAB
     Dosage: DATE OF LAST DOSE PRIOR TO SAE: 12/OCT/2012 (DOSE FORM: 293)
     Route: 042
     Dates: start: 20120817
  152. PERTUZUMAB [Suspect]
     Active Substance: PERTUZUMAB
     Dosage: UNK, CUMULATIVE DOSE: 0.158 MG, THERAPY START: 12-OCT-2012
     Route: 065
  153. PERTUZUMAB [Suspect]
     Active Substance: PERTUZUMAB
     Dosage: 1 MG, Q3W (DATE OF LAST DOSE PRIOR TO SAE: 12/OCT/2012) CUMULATIVE DOSE: 0.158 MG
     Route: 042
     Dates: start: 20120817, end: 20121012
  154. PERTUZUMAB [Suspect]
     Active Substance: PERTUZUMAB
     Dosage: UNK, THERAPY START: 12-OCT-2012
     Route: 042
  155. PERTUZUMAB [Suspect]
     Active Substance: PERTUZUMAB
     Dosage: 1 MG EVERY 3 WEEKS/DATE OF LAST DOSE PRIOR TO SAE: 12/OCT/2012 (DOSE FORM: 293) 1 MG, Q3W DATE OF LA
     Route: 042
     Dates: start: 20120817, end: 20121012
  156. PERTUZUMAB [Suspect]
     Active Substance: PERTUZUMAB
     Dosage: UNK, THERAPY START: 12-OCT-2012
     Route: 042
  157. PERTUZUMAB [Suspect]
     Active Substance: PERTUZUMAB
     Dosage: 1 MG, Q3W DATE OF LAST DOSE PRIOR TO SAE: 12 OCT 2012
     Route: 042
     Dates: start: 20120817, end: 20121012
  158. PERTUZUMAB [Suspect]
     Active Substance: PERTUZUMAB
     Dosage: UNK (DOSAGE TEXT: INFUSION), THERAPY START: 12-OCT-2012
  159. PERTUZUMAB [Suspect]
     Active Substance: PERTUZUMAB
     Dosage: UNK, THERAPY START: 12-OCT-2012
  160. PERTUZUMAB [Suspect]
     Active Substance: PERTUZUMAB
     Dosage: 1 MG EVERY 3 WEEKS/DATE OF LAST DOSE PRIOR TO SAE: 12/OCT/2012 (DOSE FORM: 293) 1 MG, Q3W DATE OF LA
     Route: 042
     Dates: start: 20120817, end: 20121012
  161. PERTUZUMAB [Suspect]
     Active Substance: PERTUZUMAB
     Dosage: UNK (CUMULATIVE DOSE TO FIRST REACTION: 0.158), THERAPY START: 12-OCT-2012
     Route: 042
  162. PERTUZUMAB [Suspect]
     Active Substance: PERTUZUMAB
     Dosage: 1 MG, Q3W (DATE OF LAST DOSE PRIOR TO SAE: 12/OCT/2012) CUMULATIVE DOSE: 0.158 MG
     Route: 042
     Dates: start: 20120817, end: 20121012
  163. PERTUZUMAB [Suspect]
     Active Substance: PERTUZUMAB
     Dosage: UNK, CUMULATIVE DOSE: 0.158 MG, THERAPY START: 12-OCT-2012
     Route: 065
  164. PERTUZUMAB [Suspect]
     Active Substance: PERTUZUMAB
     Dosage: UNK, CUMULATIVE DOSE: 0.158 MG, THERAPY START: 12-OCT-2012
     Route: 065
  165. PERTUZUMAB [Suspect]
     Active Substance: PERTUZUMAB
     Dosage: DATE OF LAST DOSE PRIOR TO SAE: 12/OCT/2012 (DOSE FORM: 293); EVERY 3 WEEKS
     Route: 042
     Dates: start: 20120817, end: 20121012
  166. PERTUZUMAB [Suspect]
     Active Substance: PERTUZUMAB
     Dosage: UNK, THERAPY START: 12-OCT-2012
  167. PERTUZUMAB [Suspect]
     Active Substance: PERTUZUMAB
     Dosage: DATE OF LAST DOSE PRIOR TO SAE: 12/OCT/2012/CUMULATIVE DOSE TO FIRST REACTION: 0.09523809 MG
     Route: 042
     Dates: start: 20120817
  168. PERTUZUMAB [Suspect]
     Active Substance: PERTUZUMAB
     Dosage: UNK (CUMULATIVE DOSE TO FIRST REACTION: 0.158), THERAPY START: 12-OCT-2012
     Route: 042
  169. PERTUZUMAB [Suspect]
     Active Substance: PERTUZUMAB
     Dosage: DATE OF LAST DOSE PRIOR TO SAE: 12/OCT/2012 (CUMULATIVE DOSE: 0.09523809 MG)
     Route: 042
     Dates: start: 20120817, end: 20121012
  170. PERTUZUMAB [Suspect]
     Active Substance: PERTUZUMAB
     Dosage: UNK (CUMULATIVE DOSE TO FIRST REACTION: 0.158), THERAPY START: 12-OCT-2012
     Route: 042
  171. PERTUZUMAB [Suspect]
     Active Substance: PERTUZUMAB
     Dosage: UNK (DOSAGE TEXT: INFUSION), THERAPY START: 12-OCT-2012
  172. PERTUZUMAB [Suspect]
     Active Substance: PERTUZUMAB
     Dosage: 1 MG, Q3W DATE OF LAST DOSE PRIOR TO SAE: 12 OCT 2012
     Route: 042
     Dates: start: 20120817, end: 20121012
  173. PERTUZUMAB [Suspect]
     Active Substance: PERTUZUMAB
     Dosage: UNK (DOSAGE TEXT: INFUSION), THERAPY START: 12-OCT-2012
  174. PERTUZUMAB [Suspect]
     Active Substance: PERTUZUMAB
     Dosage: 1 MG 3 WEEK DATE OF LAST DOSE PRIOR TO SAE: 12/OCT/2012/CUMULATIVE DOSE TO FIRST REACTION: 0.0952380
     Route: 042
     Dates: start: 20120817
  175. PERTUZUMAB [Suspect]
     Active Substance: PERTUZUMAB
     Dosage: UNK, THERAPY START: 12-OCT-2012
  176. PERTUZUMAB [Suspect]
     Active Substance: PERTUZUMAB
     Dosage: 1 MG, Q3W DATE OF LAST DOSE PRIOR TO SAE: 12 OCT 2012
     Dates: start: 20120817, end: 20121012
  177. PERTUZUMAB [Suspect]
     Active Substance: PERTUZUMAB
     Dosage: UNK, CUMULATIVE DOSE: 0.158 MG, THERAPY START: 12-OCT-2012
     Route: 065
  178. PERTUZUMAB [Suspect]
     Active Substance: PERTUZUMAB
     Dosage: DATE OF LAST DOSE PRIOR TO SAE: 12/OCT/2012 (DOSE FORM: 293); EVERY 3 WEEKS
     Route: 042
     Dates: start: 20120817, end: 20121012
  179. PERTUZUMAB [Suspect]
     Active Substance: PERTUZUMAB
     Dosage: UNK
     Route: 042
  180. PERTUZUMAB [Suspect]
     Active Substance: PERTUZUMAB
     Dosage: 1 MG, Q3W (DATE OF LAST DOSE PRIOR TO SAE: 12/OCT/2012) CUMULATIVE DOSE: 0.158 MG
     Route: 042
     Dates: start: 20120817, end: 20121012
  181. PERTUZUMAB [Suspect]
     Active Substance: PERTUZUMAB
     Dosage: UNK, THERAPY START: 12-OCT-2012
     Route: 042
  182. PERTUZUMAB [Suspect]
     Active Substance: PERTUZUMAB
     Dosage: UNK, THERAPY START: 12-OCT-2012
  183. PERTUZUMAB [Suspect]
     Active Substance: PERTUZUMAB
     Dosage: UNK (CUMULATIVE DOSE TO FIRST REACTION: 0.158), THERAPY START: 12-OCT-2012
     Route: 042
  184. PERTUZUMAB [Suspect]
     Active Substance: PERTUZUMAB
     Dosage: 1 MG, Q3W DATE OF LAST DOSE PRIOR TO SAE: 12 OCT 2012
     Dates: start: 20120817, end: 20121012
  185. PERTUZUMAB [Suspect]
     Active Substance: PERTUZUMAB
     Dosage: DATE OF LAST DOSE PRIOR TO SAE: 12 OCT 2012 (DOSE FORM: 293)
     Route: 042
     Dates: start: 20120817
  186. PERTUZUMAB [Suspect]
     Active Substance: PERTUZUMAB
     Dosage: DATE OF LAST DOSE PRIOR TO SAE: 12/OCT/2012 (DOSE FORM: 293); EVERY 3 WEEKS
     Route: 042
     Dates: start: 20120817, end: 20121012
  187. PERTUZUMAB [Suspect]
     Active Substance: PERTUZUMAB
     Dosage: UNK, THERAPY START: 12-OCT-2012
     Route: 042
  188. PERTUZUMAB [Suspect]
     Active Substance: PERTUZUMAB
     Dosage: UNK, THERAPY START: 12-OCT-2012
     Route: 042
  189. PERTUZUMAB [Suspect]
     Active Substance: PERTUZUMAB
     Dosage: 1 MG, Q3W DATE OF LAST DOSE PRIOR TO SAE: 12 OCT 2012
     Dates: start: 20120817, end: 20121012
  190. PERTUZUMAB [Suspect]
     Active Substance: PERTUZUMAB
     Dosage: UNK (DOSAGE TEXT: INFUSION), THERAPY START:12-OCT-2012
  191. PERTUZUMAB [Suspect]
     Active Substance: PERTUZUMAB
     Dosage: 1 MG, Q3W (DATE OF LAST DOSE PRIOR TO SAE: 12/OCT/2012) CUMULATIVE DOSE: 0.158 MG
     Route: 042
     Dates: start: 20120817, end: 20121012
  192. PERTUZUMAB [Suspect]
     Active Substance: PERTUZUMAB
     Dosage: 1 MG, Q3W DATE OF LAST DOSE PRIOR TO SAE: 12 OCT 2012
     Dates: start: 20120817, end: 20121012
  193. PERTUZUMAB [Suspect]
     Active Substance: PERTUZUMAB
     Dosage: UNK, THERAPY START: 12-OCT-2012
  194. PACLITAXEL [Suspect]
     Active Substance: PACLITAXEL
     Indication: Non-small cell lung cancer metastatic
     Dosage: 10 MILLIGRAM, THERAPY START: 25-MAR-2020
     Dates: end: 20200325
  195. PACLITAXEL [Suspect]
     Active Substance: PACLITAXEL
     Dosage: UNK
  196. PROLIA [Suspect]
     Active Substance: DENOSUMAB
     Indication: Non-small cell lung cancer metastatic
     Dosage: UNK
  197. PROLIA [Suspect]
     Active Substance: DENOSUMAB
     Indication: Bone pain
     Dosage: UNK, THERAPY START: 03-AUG-2020
  198. TRASTUZUMAB [Suspect]
     Active Substance: TRASTUZUMAB
     Indication: Breast cancer
     Dosage: 546 UNK
     Route: 058
     Dates: start: 20120817
  199. TRASTUZUMAB [Suspect]
     Active Substance: TRASTUZUMAB
     Indication: Breast cancer
     Dosage: 420 MG, THERAPY START: 12-OCT-2012
     Route: 058
  200. TRASTUZUMAB [Suspect]
     Active Substance: TRASTUZUMAB
     Dosage: 420 MG THERAPY START: 12-OCT-2012
     Route: 042
  201. TRASTUZUMAB [Suspect]
     Active Substance: TRASTUZUMAB
     Dosage: 420 MG THERAPY START: 12-OCT-2012
     Route: 042
  202. TRASTUZUMAB [Suspect]
     Active Substance: TRASTUZUMAB
     Dosage: 420 MG THERAPY START: 12-OCT-2012
     Route: 058
  203. TRASTUZUMAB [Suspect]
     Active Substance: TRASTUZUMAB
     Dosage: UNK
  204. TRASTUZUMAB [Suspect]
     Active Substance: TRASTUZUMAB
     Dosage: 546 UNK
     Route: 058
     Dates: start: 20120817
  205. TRASTUZUMAB [Suspect]
     Active Substance: TRASTUZUMAB
     Dosage: 546 MG
     Route: 041
     Dates: start: 20120817
  206. TRASTUZUMAB [Suspect]
     Active Substance: TRASTUZUMAB
     Dosage: 546 MILLIGRAM (INTRAVENOUS INFUSION, INTRAVENOUS DRIP)
     Route: 042
     Dates: start: 20120817
  207. TRASTUZUMAB [Suspect]
     Active Substance: TRASTUZUMAB
     Dosage: 420 MG
     Route: 042
     Dates: start: 20120817
  208. TRASTUZUMAB [Suspect]
     Active Substance: TRASTUZUMAB
     Dosage: INTRAVENOUS INFUSION, INTRAVENOUS DRIP;
     Dates: start: 20120817
  209. TRASTUZUMAB [Suspect]
     Active Substance: TRASTUZUMAB
     Dosage: 420 MG
     Dates: start: 20120817
  210. TRASTUZUMAB [Suspect]
     Active Substance: TRASTUZUMAB
     Dosage: UNK
     Dates: start: 20120817
  211. TRASTUZUMAB [Suspect]
     Active Substance: TRASTUZUMAB
     Dosage: 420 MG DOSE FORM: INJECTION
     Route: 042
     Dates: start: 20120817
  212. TRASTUZUMAB [Suspect]
     Active Substance: TRASTUZUMAB
     Dosage: 420 MILLIGRAM (INITIATED 12-OCT-2012);
     Route: 058
     Dates: start: 20120817
  213. TRASTUZUMAB [Suspect]
     Active Substance: TRASTUZUMAB
     Dosage: 230 (UNIT UNSPECIFIED) DOSE FORM: INJECTION
     Route: 042
     Dates: start: 20120817
  214. TRASTUZUMAB [Suspect]
     Active Substance: TRASTUZUMAB
     Dosage: 420MG, (INITIATED12OCT2012);(PHARMACEUTICAL DOSE FORM:SOLUTION FOR INFUSION) THERAPY START 12OCT2012
  215. TRASTUZUMAB [Suspect]
     Active Substance: TRASTUZUMAB
     Dosage: UNK
     Route: 058
     Dates: start: 20120817
  216. TRASTUZUMAB [Suspect]
     Active Substance: TRASTUZUMAB
     Dosage: UNK (DOSE FORM:230)
     Route: 042
     Dates: start: 20120817
  217. TRASTUZUMAB [Suspect]
     Active Substance: TRASTUZUMAB
     Dosage: UNK DOSE FORM: INJECTION THERAPY START: 12-OCT-2012
     Route: 042
  218. TRASTUZUMAB [Suspect]
     Active Substance: TRASTUZUMAB
     Dosage: 546 MG
     Route: 058
     Dates: start: 20120817
  219. TRASTUZUMAB [Suspect]
     Active Substance: TRASTUZUMAB
     Dosage: UNK (DOSE FORM:230)
     Route: 042
     Dates: start: 20120817
  220. TRASTUZUMAB [Suspect]
     Active Substance: TRASTUZUMAB
     Dosage: UNK (DOSE FORM:230)
     Route: 042
     Dates: start: 20120817
  221. TRASTUZUMAB [Suspect]
     Active Substance: TRASTUZUMAB
     Dosage: UNK THERAPY START: 12-OCT-2012
  222. TRASTUZUMAB [Suspect]
     Active Substance: TRASTUZUMAB
     Dosage: 546 MILLIGRAM;
     Dates: start: 20120817
  223. TRASTUZUMAB [Suspect]
     Active Substance: TRASTUZUMAB
     Dosage: 420 MG DOSE FORM: INJECTION THERAPY START: 12-OCT-2012
     Route: 042
  224. TRASTUZUMAB [Suspect]
     Active Substance: TRASTUZUMAB
     Dosage: 546 MG
     Dates: start: 20120817
  225. TRASTUZUMAB [Suspect]
     Active Substance: TRASTUZUMAB
     Dosage: UNK
     Route: 058
     Dates: start: 20120817
  226. TRASTUZUMAB [Suspect]
     Active Substance: TRASTUZUMAB
     Dosage: 546 MG
     Route: 042
     Dates: start: 20120817
  227. TRASTUZUMAB [Suspect]
     Active Substance: TRASTUZUMAB
     Dosage: 420 MG THERAPY START: 12-OCT-2012
     Route: 058
  228. TRASTUZUMAB [Suspect]
     Active Substance: TRASTUZUMAB
     Dosage: 546 MILLIGRAM;
     Route: 042
     Dates: start: 20120817
  229. TRASTUZUMAB [Suspect]
     Active Substance: TRASTUZUMAB
     Dosage: UNK DOSE FORM: INJECTION
     Route: 042
     Dates: start: 20120817
  230. TRASTUZUMAB [Suspect]
     Active Substance: TRASTUZUMAB
     Dosage: 546 MG DOSE FORM: INJECTION
     Route: 042
     Dates: start: 20120817
  231. TRASTUZUMAB [Suspect]
     Active Substance: TRASTUZUMAB
     Dosage: UNK (DOSE FORM: 120)
     Route: 058
     Dates: start: 20120817
  232. TRASTUZUMAB [Suspect]
     Active Substance: TRASTUZUMAB
     Dosage: UNK (DOSE FORM:230)
     Route: 042
     Dates: start: 20120817
  233. TRASTUZUMAB [Suspect]
     Active Substance: TRASTUZUMAB
     Dosage: 420MG (INITIATED 12-OCT-2012) (PHARMACEUTICAL DOSE FORM: SOLUTION FOR INFUSION) THERAPY12-OCT-2012
     Route: 042
  234. TRASTUZUMAB [Suspect]
     Active Substance: TRASTUZUMAB
     Dosage: UNK DOSE FORM: INJECTION
     Route: 058
     Dates: start: 20120817
  235. TRASTUZUMAB [Suspect]
     Active Substance: TRASTUZUMAB
     Dosage: INTRAVENOUS INFUSION, INTRAVENOUS DRIP;
     Route: 042
     Dates: start: 20120817
  236. TRASTUZUMAB [Suspect]
     Active Substance: TRASTUZUMAB
     Dosage: 420 MILLIGRAM (INITIATED 12-OCT-2012) THERAPY START: 12 OCT 2012
     Route: 042
  237. TRASTUZUMAB [Suspect]
     Active Substance: TRASTUZUMAB
     Dosage: 230 (UNIT UNSPECIFIED);
     Dates: start: 20120817
  238. TRASTUZUMAB [Suspect]
     Active Substance: TRASTUZUMAB
     Dosage: 420 MG THERAPY START: 12 OCT 2012
     Route: 042
  239. CALCIUM\CHOLECALCIFEROL [Concomitant]
     Active Substance: CALCIUM\CHOLECALCIFEROL
     Indication: Product used for unknown indication
     Dosage: UNK
     Dates: start: 20120817
  240. CALCIUM\CHOLECALCIFEROL [Concomitant]
     Active Substance: CALCIUM\CHOLECALCIFEROL
     Dosage: UNK
  241. CHLORPHENIRAMINE MALEATE [Concomitant]
     Active Substance: CHLORPHENIRAMINE MALEATE
     Indication: Product used for unknown indication
     Dosage: BOLUS
     Dates: start: 20120817
  242. CHLORPHENIRAMINE MALEATE [Concomitant]
     Active Substance: CHLORPHENIRAMINE MALEATE
     Indication: Product used for unknown indication
     Dosage: BOLUS
     Dates: start: 20120817
  243. CHLORPHENIRAMINE MALEATE [Concomitant]
     Active Substance: CHLORPHENIRAMINE MALEATE
     Dosage: BOLUS (ADDITIONAL INFO: ROUTE:INTRAVENOUS BOLUS)
     Dates: start: 20120817
  244. CHLORPHENIRAMINE MALEATE [Concomitant]
     Active Substance: CHLORPHENIRAMINE MALEATE
     Dosage: BOLUS
     Route: 042
     Dates: start: 20120817
  245. CHLORPHENIRAMINE MALEATE [Concomitant]
     Active Substance: CHLORPHENIRAMINE MALEATE
     Dosage: BOLUS; ;
     Route: 040
     Dates: start: 20120817
  246. CHLORPHENIRAMINE MALEATE [Concomitant]
     Active Substance: CHLORPHENIRAMINE MALEATE
     Dosage: BOLUS
     Dates: start: 20120817
  247. CHLORPHENIRAMINE MALEATE [Concomitant]
     Active Substance: CHLORPHENIRAMINE MALEATE
     Dosage: 10 MILLIGRAM
     Dates: start: 20200325, end: 20200325
  248. CHLORPHENIRAMINE MALEATE [Concomitant]
     Active Substance: CHLORPHENIRAMINE MALEATE
     Dosage: 10 MILLIGRAM
     Dates: start: 20200304, end: 20200304
  249. CYCLIZINE [Concomitant]
     Active Substance: CYCLIZINE
     Indication: Nausea
     Dosage: UNK, PRN
     Dates: start: 20200811
  250. CYCLIZINE [Concomitant]
     Active Substance: CYCLIZINE
     Dosage: UNK
  251. CYCLIZINE [Concomitant]
     Active Substance: CYCLIZINE
     Dosage: UNK, AS NECESSARY
     Dates: start: 20190524
  252. DEXAMETHASONE [Concomitant]
     Active Substance: DEXAMETHASONE
     Indication: Nausea
     Dosage: 20 MILLIGRAM
     Dates: start: 20200323, end: 20200325
  253. DEXAMETHASONE [Concomitant]
     Active Substance: DEXAMETHASONE
     Dosage: 20 MILLIGRAM
     Dates: start: 20200212, end: 20200212
  254. DEXAMETHASONE [Concomitant]
     Active Substance: DEXAMETHASONE
     Dosage: 20 MILLIGRAM
     Dates: start: 20200304, end: 20200304
  255. DEXAMETHASONE [Concomitant]
     Active Substance: DEXAMETHASONE
     Dosage: 20 MILLIGRAM
     Dates: start: 20200325, end: 20200325
  256. DEXAMETHASONE [Concomitant]
     Active Substance: DEXAMETHASONE
     Dosage: UNK, 1X/DAY
     Dates: start: 20200504, end: 20200504
  257. DEXAMETHASONE [Concomitant]
     Active Substance: DEXAMETHASONE
     Dosage: UNK
     Dates: start: 20120816, end: 20120818
  258. DEXAMETHASONE [Concomitant]
     Active Substance: DEXAMETHASONE
     Dosage: UNK
     Route: 065
     Dates: start: 20120816, end: 20120818
  259. DENOSUMAB [Concomitant]
     Active Substance: DENOSUMAB
     Indication: Bone pain
     Dosage: UNK
     Dates: start: 20200803
  260. FILGRASTIM [Concomitant]
     Active Substance: FILGRASTIM
     Indication: Product used for unknown indication
  261. FAMOTIDINE [Concomitant]
     Active Substance: FAMOTIDINE
     Indication: Diarrhoea
  262. METOCLOPRAMIDE [Concomitant]
     Active Substance: METOCLOPRAMIDE
     Indication: Product used for unknown indication
     Dosage: 80 MG
     Dates: start: 20120914, end: 20120920
  263. METOCLOPRAMIDE [Concomitant]
     Active Substance: METOCLOPRAMIDE
     Dosage: UNK
     Route: 030
     Dates: start: 20200511, end: 20200511
  264. METOCLOPRAMIDE [Concomitant]
     Active Substance: METOCLOPRAMIDE
     Dosage: 80 MILLIGRAM (40-80 MG)/40-8- MG;
     Route: 065
     Dates: start: 20120914, end: 20120920
  265. METOCLOPRAMIDE [Concomitant]
     Active Substance: METOCLOPRAMIDE
     Dosage: 40-80 MG
     Dates: start: 20120914, end: 20120920
  266. METOCLOPRAMIDE [Concomitant]
     Active Substance: METOCLOPRAMIDE
     Dosage: 40-80 MG;
     Dates: start: 20120914, end: 20120920
  267. METOCLOPRAMIDE [Concomitant]
     Active Substance: METOCLOPRAMIDE
     Dosage: 40-80 MG; 80 MILLIGRAM (40-80 MG)
     Dates: start: 20120914, end: 20120920
  268. METOCLOPRAMIDE [Concomitant]
     Active Substance: METOCLOPRAMIDE
     Dosage: 40-80 MG
     Route: 065
     Dates: start: 20120914, end: 20120920
  269. METOCLOPRAMIDE [Concomitant]
     Active Substance: METOCLOPRAMIDE
     Dosage: 40-80 MG;
     Dates: start: 20120914, end: 20120920
  270. METOCLOPRAMIDE [Concomitant]
     Active Substance: METOCLOPRAMIDE
     Dosage: 80 MILLIGRAM (40-80 MG)
     Dates: start: 20120914, end: 20120920
  271. METOCLOPRAMIDE [Concomitant]
     Active Substance: METOCLOPRAMIDE
     Dosage: 40-80 MG
     Dates: start: 20120914, end: 20120920
  272. MORPHINE [Concomitant]
     Active Substance: MORPHINE
     Indication: Pain in extremity
     Dosage: UNK
     Dates: start: 20200829
  273. ONDANSETRON [Concomitant]
     Active Substance: ONDANSETRON
     Indication: Product used for unknown indication
     Dosage: 6 MG (4-6 MG)
     Route: 048
     Dates: start: 20121012, end: 20221018
  274. ONDANSETRON [Concomitant]
     Active Substance: ONDANSETRON
     Indication: Product used for unknown indication
     Dosage: 6 MILLIGRAM (4-6 MG); 4-6 MG;
     Dates: start: 20121012, end: 20121018
  275. ONDANSETRON [Concomitant]
     Active Substance: ONDANSETRON
     Dosage: UNK
     Dates: start: 20120817
  276. ONDANSETRON [Concomitant]
     Active Substance: ONDANSETRON
     Dosage: UNK (BOLUS); ;
     Dates: start: 20120817, end: 20120821
  277. ONDANSETRON [Concomitant]
     Active Substance: ONDANSETRON
     Dosage: 6 MILLIGRAM (4-6 MG)
     Route: 048
     Dates: start: 20121012, end: 20121018
  278. ONDANSETRON [Concomitant]
     Active Substance: ONDANSETRON
     Dosage: UNK
     Route: 042
     Dates: start: 20120817
  279. ONDANSETRON [Concomitant]
     Active Substance: ONDANSETRON
     Dosage: UNK
     Route: 048
     Dates: start: 20120817
  280. ONDANSETRON [Concomitant]
     Active Substance: ONDANSETRON
     Dosage: 4-6 MG
     Route: 065
     Dates: start: 20121012, end: 20121018
  281. ONDANSETRON [Concomitant]
     Active Substance: ONDANSETRON
     Dosage: UNK
     Route: 048
     Dates: start: 20120914, end: 20120919
  282. ONDANSETRON [Concomitant]
     Active Substance: ONDANSETRON
     Dosage: UNK
     Dates: start: 20120817, end: 20120821
  283. ONDANSETRON [Concomitant]
     Active Substance: ONDANSETRON
     Dosage: UNK
     Route: 048
     Dates: start: 20120914, end: 20120918
  284. ONDANSETRON [Concomitant]
     Active Substance: ONDANSETRON
     Dosage: UNK
     Route: 042
     Dates: start: 20120817
  285. ONDANSETRON [Concomitant]
     Active Substance: ONDANSETRON
     Dosage: UNK
     Dates: start: 20120914, end: 20120919
  286. ONDANSETRON [Concomitant]
     Active Substance: ONDANSETRON
     Dosage: UNK (BOLUS)
     Route: 048
     Dates: start: 20120817, end: 20120821
  287. ONDANSETRON [Concomitant]
     Active Substance: ONDANSETRON
     Dosage: UNK
     Dates: start: 20120914, end: 20120918
  288. ONDANSETRON [Concomitant]
     Active Substance: ONDANSETRON
     Dosage: 4-6 MG
     Dates: start: 20121012, end: 20121018
  289. ONDANSETRON [Concomitant]
     Active Substance: ONDANSETRON
     Dosage: UNK
  290. ONDANSETRON [Concomitant]
     Active Substance: ONDANSETRON
     Dosage: UNK (BOLUS)
     Dates: start: 20120817, end: 20120821
  291. ONDANSETRON [Concomitant]
     Active Substance: ONDANSETRON
     Dosage: 8 MILLIGRAM
     Dates: start: 20200212, end: 20200212
  292. ONDANSETRON [Concomitant]
     Active Substance: ONDANSETRON
     Dosage: 6 MILLIGRAM 4-6 MG;
     Route: 048
     Dates: start: 20121012, end: 20121018
  293. ONDANSETRON [Concomitant]
     Active Substance: ONDANSETRON
     Dosage: UNK
     Route: 048
     Dates: start: 20120914, end: 20120918
  294. ONDANSETRON [Concomitant]
     Active Substance: ONDANSETRON
     Dosage: BOLUS
     Route: 065
     Dates: start: 20120817
  295. ONDANSETRON [Concomitant]
     Active Substance: ONDANSETRON
     Dosage: UNK (BOLUS)
     Route: 048
     Dates: start: 20120817, end: 20120821
  296. ONDANSETRON [Concomitant]
     Active Substance: ONDANSETRON
     Dosage: 6 MILLIGRAM (4-6 MG); 4-6MG
     Route: 048
     Dates: start: 20121012, end: 20121018
  297. ONDANSETRON [Concomitant]
     Active Substance: ONDANSETRON
     Dosage: 6 MILLIGRAM (4-6 MG)
     Dates: start: 20121012, end: 20121018
  298. ONDANSETRON [Concomitant]
     Active Substance: ONDANSETRON
     Dosage: UNK
     Route: 048
     Dates: start: 20120914, end: 20120918
  299. ONDANSETRON [Concomitant]
     Active Substance: ONDANSETRON
     Dosage: 6 MILLIGRAM (4-6 MG); 4-6 MG;
     Route: 048
     Dates: start: 20121012, end: 20121018
  300. ONDANSETRON [Concomitant]
     Active Substance: ONDANSETRON
     Dosage: 6 MILLIGRAM 4-6 MG;
     Route: 048
     Dates: start: 20121012, end: 20121018
  301. ONDANSETRON [Concomitant]
     Active Substance: ONDANSETRON
     Dosage: UNK
     Route: 042
     Dates: start: 20120817
  302. ONDANSETRON [Concomitant]
     Active Substance: ONDANSETRON
     Dosage: 4-6 MG;
     Route: 048
     Dates: start: 20121012, end: 20121018
  303. ONDANSETRON [Concomitant]
     Active Substance: ONDANSETRON
     Dosage: UNK
     Route: 048
     Dates: start: 20120817, end: 20120821
  304. ONDANSETRON [Concomitant]
     Active Substance: ONDANSETRON
     Dosage: UNK
     Dates: start: 20120914, end: 20120919
  305. ONDANSETRON [Concomitant]
     Active Substance: ONDANSETRON
     Dosage: UNK
     Route: 040
     Dates: start: 20120817
  306. ONDANSETRON [Concomitant]
     Active Substance: ONDANSETRON
     Dosage: UNK
     Dates: start: 20120817
  307. ONDANSETRON [Concomitant]
     Active Substance: ONDANSETRON
     Dosage: UNK
     Dates: start: 20120817, end: 20120821
  308. ONDANSETRON [Concomitant]
     Active Substance: ONDANSETRON
     Dosage: 8 MILLIGRAM
     Dates: start: 20200212, end: 20200212
  309. PREDNISOLONE [Concomitant]
     Active Substance: PREDNISOLONE
     Indication: Off label use
     Dosage: 50 MILLIGRAM
     Dates: start: 20200325, end: 20200325
  310. PREDNISOLONE [Concomitant]
     Active Substance: PREDNISOLONE
     Indication: Hepatic failure
     Dosage: 1 DF, QD
     Dates: start: 20200926, end: 20201005
  311. PREDNISOLONE [Concomitant]
     Active Substance: PREDNISOLONE
     Dosage: 1 MILLIGRAM
     Dates: start: 20200921, end: 20201005
  312. PREDNISOLONE [Concomitant]
     Active Substance: PREDNISOLONE
     Dosage: 1 DOSAGE FORM, QD
     Dates: start: 20200921, end: 20200925
  313. RANITIDINE [Concomitant]
     Active Substance: RANITIDINE
     Indication: Product used for unknown indication
     Dosage: BOLUS
     Route: 040
     Dates: start: 20120817
  314. RANITIDINE [Concomitant]
     Active Substance: RANITIDINE
     Indication: Product used for unknown indication
     Dosage: BOLUS; ;
     Dates: start: 20120817
  315. RANITIDINE [Concomitant]
     Active Substance: RANITIDINE
     Dosage: BOLUS; ;
     Route: 040
     Dates: start: 20120817
  316. RANITIDINE [Concomitant]
     Active Substance: RANITIDINE
     Dosage: BOLUS
     Route: 042
     Dates: start: 20120817
  317. RANITIDINE [Concomitant]
     Active Substance: RANITIDINE
     Dosage: BOLUS
     Dates: start: 20120817
  318. RANITIDINE [Concomitant]
     Active Substance: RANITIDINE
     Dosage: BOLUS
     Route: 040
     Dates: start: 20120817
  319. RANITIDINE [Concomitant]
     Active Substance: RANITIDINE
     Dosage: 50 MILLIGRAM
     Dates: start: 20200304, end: 20200304
  320. RANITIDINE [Concomitant]
     Active Substance: RANITIDINE
     Dosage: 50 MILLIGRAM
     Dates: start: 20200325, end: 20200325
  321. SIMVASTATIN [Concomitant]
     Active Substance: SIMVASTATIN
     Indication: Product used for unknown indication
     Dosage: UNK
  322. GLICLAZIDE [Concomitant]
     Active Substance: GLICLAZIDE
     Indication: Product used for unknown indication
  323. LOPERAMIDE [Concomitant]
     Active Substance: LOPERAMIDE
     Indication: Product used for unknown indication

REACTIONS (35)
  - Abdominal pain upper [Not Recovered/Not Resolved]
  - Diarrhoea [Recovered/Resolved]
  - Diarrhoea [Unknown]
  - Decreased appetite [Not Recovered/Not Resolved]
  - Decreased appetite [Not Recovered/Not Resolved]
  - Decreased appetite [Not Recovered/Not Resolved]
  - Vomiting [Recovering/Resolving]
  - Vomiting [Recovering/Resolving]
  - Nausea [Not Recovered/Not Resolved]
  - Nausea [Recovering/Resolving]
  - Weight decreased [Recovered/Resolved]
  - Disease progression [Unknown]
  - Mucosal inflammation [Not Recovered/Not Resolved]
  - Mucosal inflammation [Not Recovered/Not Resolved]
  - Autoimmune haemolytic anaemia [Recovering/Resolving]
  - Autoimmune haemolytic anaemia [Recovering/Resolving]
  - Blood magnesium decreased [Recovering/Resolving]
  - Ear pain [Not Recovered/Not Resolved]
  - Ear pain [Not Recovered/Not Resolved]
  - Haemoglobin decreased [Not Recovered/Not Resolved]
  - Haemoglobin decreased [Recovered/Resolved]
  - Haemoglobin decreased [Unknown]
  - Platelet count decreased [Unknown]
  - White blood cell count decreased [Recovered/Resolved]
  - White blood cell count decreased [Recovered/Resolved]
  - Anaemia [Recovered/Resolved]
  - Hepatic failure [Not Recovered/Not Resolved]
  - Fatigue [Not Recovered/Not Resolved]
  - Neuropathy peripheral [Unknown]
  - Pain in extremity [Unknown]
  - Bone pain [Not Recovered/Not Resolved]
  - Off label use [Unknown]
  - Off label use [Unknown]
  - Off label use [Unknown]
  - Intentional product use issue [Unknown]

NARRATIVE: CASE EVENT DATE: 20120817
